FAERS Safety Report 7257052-3 (Version None)
Quarter: 2011Q1

REPORT INFORMATION
  Report Type: 
  Country: None (occurrence: None)
  Receive Date: 20110129
  Receipt Date: 20100622
  Transmission Date: 20110831
  Serious: No
  Sender: FDA-Public Use
  Company Number: US-ABBOTT-10P-163-0653883-00

PATIENT
  Sex: Female
  Weight: 56.75 kg

DRUGS (4)
  1. VALIUM [Concomitant]
     Indication: ANXIETY
  2. HUMIRA [Suspect]
     Indication: PSORIATIC ARTHROPATHY
     Dates: start: 20100317
  3. SOMA [Concomitant]
     Indication: ARTHRALGIA
  4. TRAZODONE HCL [Concomitant]
     Indication: INSOMNIA

REACTIONS (6)
  - TREMOR [None]
  - SINUSITIS [None]
  - ARTHRALGIA [None]
  - SENSORY DISTURBANCE [None]
  - FATIGUE [None]
  - PAIN [None]
